FAERS Safety Report 6748518-0 (Version None)
Quarter: 2010Q2

REPORT INFORMATION
  Report Type: 
  Country: None (occurrence: None)
  Receive Date: 20100527
  Receipt Date: 20100527
  Transmission Date: 20101027
  Serious: No
  Sender: FDA-Public Use
  Company Number: None

PATIENT
  Sex: Male
  Weight: 68.4932 kg

DRUGS (1)
  1. PHENYTOIN [Suspect]
     Indication: CONVULSION
     Dosage: 2 TABLETS TWICE DAILY PO
     Route: 048

REACTIONS (2)
  - DRUG LEVEL FLUCTUATING [None]
  - PRODUCT SUBSTITUTION ISSUE [None]
